FAERS Safety Report 19650285 (Version 1)
Quarter: 2021Q3

REPORT INFORMATION
  Report Type: Spontaneous
  Country: CH (occurrence: CH)
  Receive Date: 20210802
  Receipt Date: 20210802
  Transmission Date: 20211014
  Serious: Yes (Hospitalization, Other)
  Sender: FDA-Public Use
  Company Number: NVSC2021CH169684

PATIENT
  Age: 88 Year
  Sex: Male
  Weight: 75 kg

DRUGS (19)
  1. NOVALGIN (METAMIZOLE SODIUM) [Suspect]
     Active Substance: METAMIZOLE SODIUM
     Indication: BACK PAIN
     Dosage: 500 MG, Q8H )(1?1?1?0)
     Route: 048
     Dates: start: 20210215, end: 20210218
  2. QUETIAPIN SANDOZ [Suspect]
     Active Substance: QUETIAPINE
     Indication: RESTLESSNESS
     Dosage: 25 MG, QD (0?0?1/ 2?0)
     Route: 048
     Dates: start: 201905, end: 20210224
  3. DAFALGAN [Suspect]
     Active Substance: ACETAMINOPHEN
     Indication: BACK PAIN
     Dosage: 500 MG, Q8H (1?1?1?0)
     Route: 048
     Dates: start: 20210217, end: 20210218
  4. QUETIAPIN SANDOZ [Suspect]
     Active Substance: QUETIAPINE
     Dosage: 12.5 MG, PRN
     Route: 048
     Dates: start: 201905, end: 20210224
  5. AMLODIPINE [Concomitant]
     Active Substance: AMLODIPINE BESYLATE
     Indication: PRODUCT USED FOR UNKNOWN INDICATION
     Dosage: 5 MG, QD (0?0?1?0)
     Route: 048
     Dates: start: 201911
  6. MARCOUMAR [Concomitant]
     Active Substance: PHENPROCOUMON
     Indication: PRODUCT USED FOR UNKNOWN INDICATION
     Dosage: 1 DF, PRN (3 MG ACCORDING TO INR)
     Route: 048
     Dates: start: 201911
  7. ISOKET [Concomitant]
     Active Substance: ISOSORBIDE DINITRATE
     Indication: PRODUCT USED FOR UNKNOWN INDICATION
     Dosage: 1 DF, PRN (1.25 MG) (SPRAY) (MAXIMUM 3 DOSES PER DAY)
     Route: 048
     Dates: start: 201911
  8. OXYNORM [Concomitant]
     Active Substance: OXYCODONE HYDROCHLORIDE
     Indication: PRODUCT USED FOR UNKNOWN INDICATION
     Dosage: 5 MG, PRN (MAXIMUM 8 TABLETS PER 24 HOURS)
     Route: 048
     Dates: start: 201911
  9. NITRODERM [Concomitant]
     Active Substance: NITROGLYCERIN
     Indication: PRODUCT USED FOR UNKNOWN INDICATION
     Dosage: 1 DF, QD (5 MG/ 24 HOURS) (1 PIECE EVERY 24 HOURS (EACH FROM 8:00 A.M. TO 8:00 P.M.)
     Route: 062
     Dates: start: 20210217
  10. CEFEPIME [Suspect]
     Active Substance: CEFEPIME HYDROCHLORIDE
     Indication: PYREXIA
     Dosage: 1 G, Q8H
     Route: 042
     Dates: start: 20210224, end: 20210226
  11. ESOMEPRAZOL HELVEPHARM [Concomitant]
     Active Substance: ESOMEPRAZOLE MAGNESIUM
     Indication: PRODUCT USED FOR UNKNOWN INDICATION
     Dosage: 20 MG, QD (1?0?0?0)
     Route: 048
     Dates: start: 201911
  12. MACROGOL SANDOZ [Concomitant]
     Active Substance: POLYETHYLENE GLYCOL 3350\POTASSIUM CHLORIDE\SODIUM BICARBONATE\SODIUM CHLORIDE
     Indication: PRODUCT USED FOR UNKNOWN INDICATION
     Dosage: 1 DF, QD (SACHET) (1?0?0?0)
     Route: 048
     Dates: start: 201911
  13. METHADON STREULI [Concomitant]
     Active Substance: METHADONE HYDROCHLORIDE
     Indication: PRODUCT USED FOR UNKNOWN INDICATION
     Dosage: 8 DRP, Q12H (8?0?8?0)
     Route: 048
     Dates: start: 201911
  14. CEFEPIME [Suspect]
     Active Substance: CEFEPIME HYDROCHLORIDE
     Indication: INFECTION
     Dosage: 2 G, Q8H
     Route: 042
     Dates: start: 20210221, end: 20210223
  15. CITALOPRAM MEPHA [Concomitant]
     Active Substance: CITALOPRAM HYDROBROMIDE
     Indication: PRODUCT USED FOR UNKNOWN INDICATION
     Dosage: 20 MG, QD (1?0?0?0)
     Route: 048
     Dates: start: 201911
  16. LAXOBERON [Concomitant]
     Active Substance: SODIUM PICOSULFATE
     Indication: PRODUCT USED FOR UNKNOWN INDICATION
     Dosage: 1 DF, PRN (LAXATIVE DROPS) (MAXIMUM 10 DROPS PER 24 HOURS)
     Route: 048
     Dates: start: 201911
  17. FLECTOR EP [Concomitant]
     Active Substance: DICLOFENAC EPOLAMINE
     Indication: PRODUCT USED FOR UNKNOWN INDICATION
     Dosage: 1 DF, QD (1 PATCH/ 24 HOURS)
     Route: 062
     Dates: start: 20210217
  18. MYCOSTATIN [Concomitant]
     Active Substance: NYSTATIN
     Indication: INFECTION
     Dosage: UNK
     Route: 065
  19. MYCOSTATIN [Concomitant]
     Active Substance: NYSTATIN
     Indication: PYREXIA

REACTIONS (2)
  - Confusional state [Recovering/Resolving]
  - Agranulocytosis [Recovered/Resolved]

NARRATIVE: CASE EVENT DATE: 20210218
